FAERS Safety Report 19021565 (Version 1)
Quarter: 2021Q1

REPORT INFORMATION
  Report Type: Spontaneous
  Country: CZ (occurrence: CZ)
  Receive Date: 20210317
  Receipt Date: 20210317
  Transmission Date: 20210420
  Serious: Yes (Life-Threatening, Hospitalization, Disabling, Other)
  Sender: FDA-Public Use
  Company Number: CZ-TEVA-2021-CZ-1890130

PATIENT
  Age: 75 Year
  Sex: Female
  Weight: 45 kg

DRUGS (14)
  1. ZOLPIDEM AUROVITAS 10MG [Suspect]
     Active Substance: ZOLPIDEM TARTRATE
     Indication: ARTHRALGIA
  2. XALATAN [Concomitant]
     Active Substance: LATANOPROST
  3. HELICID [Concomitant]
     Active Substance: OMEPRAZOLE
     Dosage: 1 TABLET DUE TO HEARBURN, MAX 1 A DAY ,UNIT DOSE : 20 MG
  4. OXAZEPAM. [Concomitant]
     Active Substance: OXAZEPAM
     Dosage: 0.5 ? 0.5 ? 0 ? 0, UNIT DOSE : 5 MG
  5. IBUMAX [Concomitant]
     Active Substance: IBUPROFEN
     Indication: BACK PAIN
     Dosage: FOR BACK PAIN UP TO 4 TABLETS AFTER 4 HOURS PER DAY , UNIT DOSE : 400  MG
  6. ZOLPIDEM MYLAN 10MG [Suspect]
     Active Substance: ZOLPIDEM TARTRATE
     Dosage: SHE IS REGULARLY OVERDOSING HERSELF WITH 10 ? 15 TABLETS. , UNIT DOSE : 10 MG
  7. ZOLPIDEM RATIOPHARM 10MG [Suspect]
     Active Substance: ZOLPIDEM TARTRATE
     Dosage: SHE IS REGULARLY OVERDOSING HERSELF WITH 10 ? 15 TABLETS. , UNIT DOSE : 10 MG
  8. ZOLPIDEM AUROVITAS 10MG [Suspect]
     Active Substance: ZOLPIDEM TARTRATE
     Indication: BACK PAIN
     Dosage: SHE IS REGULARLY OVERDOSING HERSELF WITH 10 ? 15 TABLETS. , UNIT DOSE : 10 MG
     Route: 048
     Dates: start: 201903
  9. ESPUMISAN [Concomitant]
     Active Substance: DIMETHICONE
     Dosage: TAKE WITH GREAT BLOATING , UNIT DOSE : 40 MG
  10. PANCREOLAN FORTE [Concomitant]
     Active Substance: DIASTASE\LIPASE\PROTEASE
     Dosage: 6000U , UNIT DOSE : 6000 IU
  11. EUTHYROX [Concomitant]
     Active Substance: LEVOTHYROXINE SODIUM
     Dosage: UNIT DOSE : 150 MG
  12. BURONIL [Concomitant]
     Active Substance: MELPERONE HYDROCHLORIDE
     Dosage: 1 ? 2 TABLETS BEFORE SLEEP , UNIT DOSE : 25 MG
  13. MIRTAZAPIN SANDOZ [Concomitant]
     Dosage: UNIT DOSE : 15 MG
  14. SERTRALIN VIPHARM [Concomitant]
     Dosage: UNIT DOSE : 50 MG

REACTIONS (5)
  - Back pain [Not Recovered/Not Resolved]
  - Balance disorder [Not Recovered/Not Resolved]
  - Disorientation [Not Recovered/Not Resolved]
  - Malaise [Not Recovered/Not Resolved]
  - Arthralgia [Not Recovered/Not Resolved]

NARRATIVE: CASE EVENT DATE: 2019
